FAERS Safety Report 8376654 (Version 2)
Quarter: 2013Q1

REPORT INFORMATION
  Report Type: Report from Study
  Country: US (occurrence: US)
  Receive Date: 20120129
  Receipt Date: 20130129
  Transmission Date: 20140127
  Serious: No
  Sender: FDA-Public Use
  Company Number: US-ABBOTT-11P-163-0855781-00

PATIENT
  Sex: Female

DRUGS (2)
  1. HUMIRA 40 MG/ 0.8 ML PRE-FILLED SYRINGE [Suspect]
     Indication: RHEUMATOID ARTHRITIS
     Route: 058
     Dates: start: 200804
  2. HUMIRA 40 MG/ 0.8 ML PRE-FILLED SYRINGE [Suspect]
     Indication: CROHN^S DISEASE

REACTIONS (8)
  - Fatigue [Unknown]
  - Balance disorder [Unknown]
  - Fatigue [Unknown]
  - Muscular weakness [Unknown]
  - Nervous system disorder [Unknown]
  - Gait disturbance [Unknown]
  - Pain in extremity [Unknown]
  - Coordination abnormal [Unknown]
